FAERS Safety Report 11429370 (Version 1)
Quarter: 2015Q3

REPORT INFORMATION
  Report Type: Spontaneous
  Country: US (occurrence: US)
  Receive Date: 20150828
  Receipt Date: 20150828
  Transmission Date: 20151125
  Serious: No
  Sender: FDA-Public Use
  Company Number: US-ROCHE-1200679

PATIENT
  Sex: Female

DRUGS (3)
  1. PEGASYS [Suspect]
     Active Substance: PEGINTERFERON ALFA-2A
     Indication: CHRONIC HEPATITIS C
     Route: 065
     Dates: start: 20130309
  2. INSULIN [Concomitant]
     Active Substance: INSULIN NOS
  3. RIBAVIRIN. [Suspect]
     Active Substance: RIBAVIRIN
     Indication: CHRONIC HEPATITIS C
     Route: 065
     Dates: start: 20130301

REACTIONS (5)
  - Feeling abnormal [Unknown]
  - Headache [Unknown]
  - Pain [Unknown]
  - Feeling hot [Unknown]
  - Abdominal discomfort [Unknown]
